FAERS Safety Report 8350544-5 (Version None)
Quarter: 2012Q2

REPORT INFORMATION
  Report Type: 
  Country: None (occurrence: None)
  Receive Date: 20120510
  Receipt Date: 20120503
  Transmission Date: 20120825
  Serious: Yes (Other)
  Sender: FDA-Public Use
  Company Number: CN-GILEAD-2012-0053976

PATIENT
  Age: 46 Year
  Sex: Female

DRUGS (1)
  1. HEPSERA [Suspect]
     Indication: HEPATITIS B
     Route: 048
     Dates: start: 20071001, end: 20100415

REACTIONS (10)
  - OSTEOPOROSIS [None]
  - ECCHYMOSIS [None]
  - ARTHRALGIA [None]
  - BACK PAIN [None]
  - FANCONI SYNDROME [None]
  - MUSCULOSKELETAL PAIN [None]
  - OSTEOMALACIA [None]
  - ULCER [None]
  - MYALGIA [None]
  - PAIN IN EXTREMITY [None]
